FAERS Safety Report 16043305 (Version 2)
Quarter: 2019Q1

REPORT INFORMATION
  Report Type: Spontaneous
  Country: US (occurrence: US)
  Receive Date: 20190306
  Receipt Date: 20190314
  Transmission Date: 20190418
  Serious: No
  Sender: FDA-Public Use
  Company Number: PHHY2019US049502

PATIENT
  Sex: Female

DRUGS (1)
  1. ICAPS AREDS [Suspect]
     Active Substance: MINERALS\VITAMINS
     Indication: MACULAR DEGENERATION
     Route: 065

REACTIONS (5)
  - Cough [Unknown]
  - Dyspnoea [Unknown]
  - Drug ineffective [Unknown]
  - Hypersensitivity [Unknown]
  - Product quality issue [Unknown]
